FAERS Safety Report 17749319 (Version 1)
Quarter: 2020Q2

REPORT INFORMATION
  Report Type: Report from Study
  Country: None (occurrence: US)
  Receive Date: 20200505
  Receipt Date: 20200505
  Transmission Date: 20200714
  Serious: Yes (Hospitalization, Other)
  Sender: FDA-Public Use
  Company Number: US-ABBVIE-20K-163-3388507-00

PATIENT
  Age: 78 Year
  Sex: Female

DRUGS (1)
  1. HUMIRA [Suspect]
     Active Substance: ADALIMUMAB
     Indication: RHEUMATOID ARTHRITIS
     Route: 058

REACTIONS (4)
  - Traumatic haematoma [Recovering/Resolving]
  - Cardiac pacemaker insertion [Recovering/Resolving]
  - Fall [Unknown]
  - Patella fracture [Recovering/Resolving]

NARRATIVE: CASE EVENT DATE: 20200324
